FAERS Safety Report 5138362-2 (Version None)
Quarter: 2006Q4

REPORT INFORMATION
  Report Type: 
  Country: None (occurrence: None)
  Receive Date: 20061025
  Receipt Date: 20061025
  Transmission Date: 20070319
  Serious: No
  Sender: FDA-Public Use
  Company Number: None

PATIENT
  Sex: Female

DRUGS (2)
  1. ZOLOFT [Suspect]
     Indication: ANXIETY
     Dosage: 100MG 1 DAILY PO
     Route: 048
  2. ZOLOFT [Suspect]
     Indication: DEPRESSION
     Dosage: 100MG 1 DAILY PO
     Route: 048

REACTIONS (4)
  - ANGER [None]
  - DRUG INEFFECTIVE [None]
  - MALAISE [None]
  - MOOD SWINGS [None]
